FAERS Safety Report 6654687-3 (Version None)
Quarter: 2010Q1

REPORT INFORMATION
  Report Type: 
  Country: None (occurrence: None)
  Receive Date: 20100326
  Receipt Date: 20100323
  Transmission Date: 20100710
  Serious: Yes (Hospitalization)
  Sender: FDA-Public Use
  Company Number: FR-MERCK-1003FRA00078

PATIENT
  Age: 71 Year
  Sex: Male
  Weight: 93 kg

DRUGS (11)
  1. EMEND [Suspect]
     Route: 048
     Dates: start: 20091224, end: 20091226
  2. ALIMTA [Suspect]
     Route: 042
     Dates: start: 20091223, end: 20091223
  3. AVASTIN [Concomitant]
     Route: 042
     Dates: start: 20091223, end: 20091223
  4. ELOXATIN [Concomitant]
     Route: 042
     Dates: start: 20091223, end: 20091223
  5. SOLU-MEDROL [Concomitant]
     Route: 042
     Dates: start: 20091223, end: 20091223
  6. TAREG [Concomitant]
     Route: 065
  7. ALLOPURINOL [Concomitant]
     Route: 065
  8. STAGID [Concomitant]
     Route: 065
  9. INIPOMP [Concomitant]
     Route: 065
  10. KARDEGIC [Concomitant]
     Route: 065
  11. XYZAL [Concomitant]
     Route: 065

REACTIONS (1)
  - TOXIC SKIN ERUPTION [None]
